FAERS Safety Report 7610961-5 (Version None)
Quarter: 2011Q3

REPORT INFORMATION
  Report Type: 
  Country: None (occurrence: None)
  Receive Date: 20110715
  Receipt Date: 20110711
  Transmission Date: 20111222
  Serious: Yes (Life-Threatening)
  Sender: FDA-Public Use
  Company Number: PHHY2011FR61868

PATIENT
  Sex: Male

DRUGS (5)
  1. VOLTAREN [Suspect]
     Indication: BACK PAIN
     Dosage: 100 MG, BID
     Route: 048
     Dates: start: 20110322
  2. FENOFIBRATE [Concomitant]
     Dosage: UNK UKN, UNK
     Route: 048
  3. ASPIRIN [Interacting]
     Dosage: UNK UKN, UNK
     Route: 048
  4. PRETERAX [Concomitant]
     Dosage: UNK UKN, UNK
     Route: 048
  5. OMEPRAZOLE [Concomitant]
     Dosage: 20 MG, QD
     Route: 048
     Dates: start: 20110322

REACTIONS (12)
  - ABDOMINAL PAIN UPPER [None]
  - HELICOBACTER INFECTION [None]
  - GASTRIC ULCER HAEMORRHAGE [None]
  - HAEMATEMESIS [None]
  - SPLENIC HAEMORRHAGE [None]
  - MELAENA [None]
  - SHOCK HAEMORRHAGIC [None]
  - ASTHENIA [None]
  - LUNG DISORDER [None]
  - GASTRITIS [None]
  - HAEMOGLOBIN DECREASED [None]
  - CITROBACTER INFECTION [None]
